FAERS Safety Report 5138122-2 (Version None)
Quarter: 2006Q4

REPORT INFORMATION
  Report Type: 
  Country: None (occurrence: None)
  Receive Date: 20061030
  Receipt Date: 20060418
  Transmission Date: 20070319
  Serious: No
  Sender: FDA-Public Use
  Company Number: US-GLAXOSMITHKLINE-A0602186A

PATIENT
  Age: 77 Year
  Sex: Male

DRUGS (8)
  1. ADVAIR HFA [Suspect]
     Dosage: 1PUFF TWICE PER DAY
     Route: 055
     Dates: start: 20060406, end: 20060401
  2. BIPAP [Concomitant]
  3. LISINOPRIL [Concomitant]
  4. ISOSORBIDE [Concomitant]
  5. ATROVENT [Concomitant]
  6. METFORMIN HCL [Concomitant]
  7. ACTOS [Concomitant]
  8. OXYGEN [Concomitant]

REACTIONS (3)
  - FATIGUE [None]
  - OXYGEN SUPPLEMENTATION [None]
  - THIRST [None]
